FAERS Safety Report 4656821-3 (Version None)
Quarter: 2005Q2

REPORT INFORMATION
  Report Type: 
  Country: None (occurrence: None)
  Receive Date: 20050505
  Receipt Date: 20050429
  Transmission Date: 20051028
  Serious: Yes (Life-Threatening, Hospitalization)
  Sender: FDA-Public Use
  Company Number: 2005PK00370

PATIENT
  Age: 49 Year
  Sex: Male

DRUGS (7)
  1. SEROQUEL [Suspect]
     Indication: BIPOLAR DISORDER
     Dosage: 200 MG DAILY PO
     Route: 048
     Dates: start: 20040624, end: 20040624
  2. SEROQUEL [Suspect]
     Indication: BIPOLAR DISORDER
     Dosage: 500 MG DAILY PO
     Route: 048
     Dates: start: 20040625, end: 20040626
  3. SEROQUEL [Suspect]
     Indication: BIPOLAR DISORDER
     Dosage: 800 MG DAILY PO
     Route: 048
     Dates: start: 20040627, end: 20040629
  4. SEROQUEL [Suspect]
     Indication: BIPOLAR DISORDER
     Dosage: 1000 MG DAILY PO
     Route: 048
     Dates: start: 20040630, end: 20040725
  5. ERGENYL [Concomitant]
  6. RIVOTRIL [Concomitant]
  7. XANEF [Concomitant]

REACTIONS (6)
  - BODY TEMPERATURE INCREASED [None]
  - C-REACTIVE PROTEIN INCREASED [None]
  - DEEP VEIN THROMBOSIS [None]
  - DEHYDRATION [None]
  - PULMONARY EMBOLISM [None]
  - RESPIRATORY FAILURE [None]
